FAERS Safety Report 8721655 (Version 2)
Quarter: 2012Q4

REPORT INFORMATION
  Report Type: 
  Country: US (occurrence: None)
  Receive Date: 20120727
  Receipt Date: 20120813
  Transmission Date: 20130627
  Serious: Yes (Death)
  Sender: FDA-Public Use
  Company Number: 2012MA008610

PATIENT

DRUGS (1)
  1. KADIAN [Suspect]
     Indication: PRODUCT USED FOR UNKNOWN INDICATION
     Dosage: PO
     Route: 048
     Dates: end: 2010

REACTIONS (4)
  - Drug abuse [None]
  - Intentional drug misuse [None]
  - Completed suicide [None]
  - Toxicity to various agents [None]
